FAERS Safety Report 21002367 (Version 16)
Quarter: 2024Q1

REPORT INFORMATION
  Report Type: Spontaneous
  Country: DE (occurrence: DE)
  Receive Date: 20220624
  Receipt Date: 20240228
  Transmission Date: 20240410
  Serious: Yes (Other)
  Sender: FDA-Public Use
  Company Number: None

PATIENT
  Age: 77 Year
  Sex: Male
  Weight: 77 kg

DRUGS (93)
  1. XARELTO [Suspect]
     Active Substance: RIVAROXABAN
     Indication: Product used for unknown indication
     Dosage: UNK
     Route: 048
  2. XARELTO [Suspect]
     Active Substance: RIVAROXABAN
     Indication: Product used for unknown indication
     Dosage: UNK
     Route: 048
  3. XARELTO [Suspect]
     Active Substance: RIVAROXABAN
     Indication: Product used for unknown indication
     Dosage: UNK
     Route: 048
  4. GINKGO [Suspect]
     Active Substance: GINKGO
     Dosage: UNK UNK, BID
     Route: 065
  5. DICLOFENAC DIETHYLAMINE [Suspect]
     Active Substance: DICLOFENAC DIETHYLAMINE
     Dosage: UNK
     Route: 065
  6. ALBUTEROL SULFATE [Suspect]
     Active Substance: ALBUTEROL SULFATE
     Dosage: UNK
     Route: 045
     Dates: start: 2018, end: 2018
  7. SOAP [Suspect]
     Active Substance: SOAP
     Dosage: UNK
  8. SOAP [Suspect]
     Active Substance: SOAP
     Dosage: UNK, Q3WK
  9. SOAP [Suspect]
     Active Substance: SOAP
     Dosage: 10 GTT DROPS
  10. SOAP [Suspect]
     Active Substance: SOAP
     Dosage: UNK, TID
  11. SOAP [Suspect]
     Active Substance: SOAP
     Dosage: UNK, QD
  12. SOAP [Suspect]
     Active Substance: SOAP
     Dosage: CUTANEOUS EMULSION
     Route: 065
  13. ERGOCALCIFEROL [Suspect]
     Active Substance: ERGOCALCIFEROL
     Dosage: UNK, OW
  14. ROSUVASTATIN CALCIUM [Suspect]
     Active Substance: ROSUVASTATIN CALCIUM
  15. CIALIS [Suspect]
     Active Substance: TADALAFIL
     Dosage: UNK
     Route: 065
  16. MAGNESIUM OROTATE [Suspect]
     Active Substance: MAGNESIUM OROTATE
     Dosage: UNKNOWN (3-2-3)
     Route: 065
  17. MAGNESIUM OROTATE [Suspect]
     Active Substance: MAGNESIUM OROTATE
     Dosage: UNK UNK, DAILY (TID (3-2-3))  TID
     Route: 065
  18. BIOTIN [Suspect]
     Active Substance: BIOTIN
     Dosage: 1 DF, QD
  19. COLESEVELAM [Suspect]
     Active Substance: COLESEVELAM
     Dosage: UNK
  20. .ALPHA.-TOCOPHEROL ACETATE [Suspect]
     Active Substance: .ALPHA.-TOCOPHEROL ACETATE
     Dosage: 1 DF, QW
  21. .ALPHA.-TOCOPHEROL ACETATE [Suspect]
     Active Substance: .ALPHA.-TOCOPHEROL ACETATE
     Dosage: 2000 IU, QW
  22. HERBALS [Suspect]
     Active Substance: HERBALS
     Dosage: UNK
  23. AMBROXOL HYDROCHLORIDE [Suspect]
     Active Substance: AMBROXOL HYDROCHLORIDE
     Dosage: UNK
  24. TAMSULOSIN [Suspect]
     Active Substance: TAMSULOSIN
     Dosage: UNK UNK, UNKNOWN
     Route: 065
  25. ERGOCALCIFEROL [Suspect]
     Active Substance: ERGOCALCIFEROL
     Dosage: UNK, OW
     Route: 065
  26. ERGOCALCIFEROL [Suspect]
     Active Substance: ERGOCALCIFEROL
     Dosage: UNK, OW
  27. VITAMIN E [Suspect]
     Active Substance: .ALPHA.-TOCOPHEROL
     Dosage: 2000 UNK  [IU] (INTERNATIONAL UNIT)
  28. VITAMIN E [Suspect]
     Active Substance: .ALPHA.-TOCOPHEROL
     Dosage: UNK, Q2WK
     Route: 065
  29. AMBROXOL HYDROCHLORIDE [Suspect]
     Active Substance: AMBROXOL HYDROCHLORIDE
     Dosage: UNKNOWN
     Route: 045
  30. PRALUENT [Suspect]
     Active Substance: ALIROCUMAB
     Dosage: UNK UNK, UNKNOWN 75 UNK
     Route: 065
  31. COLESEVELAM HYDROCHLORIDE [Suspect]
     Active Substance: COLESEVELAM HYDROCHLORIDE
     Dosage: UNK
  32. MAGNESIUM ASPARTATE [Suspect]
     Active Substance: MAGNESIUM ASPARTATE
     Dosage: UNK, BID
  33. ASPIRIN CALCIUM [Suspect]
     Active Substance: ASPIRIN CALCIUM
     Dosage: UNK, BID
  34. MAGNESIUM ASPARTATE\POTASSIUM ASPARTATE [Suspect]
     Active Substance: MAGNESIUM ASPARTATE\POTASSIUM ASPARTATE
     Dosage: UNK
     Route: 065
  35. CLOPIDOGREL [Suspect]
     Active Substance: CLOPIDOGREL BISULFATE
     Dosage: UNK, BID
     Route: 065
     Dates: start: 20201210
  36. MOMETASONE FUROATE [Suspect]
     Active Substance: MOMETASONE FUROATE
     Dosage: 2 PUFF(S)
     Route: 065
  37. MOMETASONE FUROATE [Suspect]
     Active Substance: MOMETASONE FUROATE
     Dosage: 2 DF
     Route: 065
  38. MOMETASONE FUROATE [Suspect]
     Active Substance: MOMETASONE FUROATE
     Dosage: 4 DF, BID
     Route: 065
  39. TADALAFIL [Suspect]
     Active Substance: TADALAFIL
     Dosage: UNK
  40. FLUTICASONE PROPIONATE\SALMETEROL XINAFOATE [Suspect]
     Active Substance: FLUTICASONE PROPIONATE\SALMETEROL XINAFOATE
     Dosage: UNK
     Route: 045
     Dates: end: 2018
  41. ATROVENT [Suspect]
     Active Substance: IPRATROPIUM BROMIDE
     Dosage: UNK
     Route: 045
     Dates: start: 2018, end: 2018
  42. CALCIUM PANTOTHENATE [Suspect]
     Active Substance: CALCIUM PANTOTHENATE
  43. TOCOPHEROL [Suspect]
     Active Substance: TOCOPHEROL
     Dosage: 2000 UNK [IU] (INTERNATIONAL UNIT)
  44. IBUPROFEN [Suspect]
     Active Substance: IBUPROFEN
     Route: 065
  45. IBUPROFEN [Suspect]
     Active Substance: IBUPROFEN
     Route: 065
  46. DIETARY SUPPLEMENT [Suspect]
     Active Substance: DIETARY SUPPLEMENT
     Dosage: 1 DF, QD, 2 PUFFS
     Route: 065
  47. DIETARY SUPPLEMENT [Suspect]
     Active Substance: DIETARY SUPPLEMENT
     Dosage: 1 DF, TID, 3-2-3
     Route: 065
  48. DIETARY SUPPLEMENT [Suspect]
     Active Substance: DIETARY SUPPLEMENT
     Dosage: 1 DF, TID, 2-0-1
     Route: 065
  49. DIETARY SUPPLEMENT [Suspect]
     Active Substance: DIETARY SUPPLEMENT
     Dosage: 1 DF, TID, 2-0-1
     Route: 065
  50. DIETARY SUPPLEMENT [Suspect]
     Active Substance: DIETARY SUPPLEMENT
     Dosage: 1 DF, UNK
     Route: 065
  51. ASPIRIN [Suspect]
     Active Substance: ASPIRIN
     Route: 065
  52. CALCIUM CARBONATE [Suspect]
     Active Substance: CALCIUM CARBONATE
     Dosage: 100 MG UNK ,500 MG BID(1 IN 1.5 DAY UNK, CALCIUM HEXAL (CALCIUM CARBONATE)
     Route: 065
  53. CALCIUM CARBONATE [Suspect]
     Active Substance: CALCIUM CARBONATE
     Route: 065
  54. IBUPROFEN [Suspect]
     Active Substance: IBUPROFEN
  55. DICLOFENAC EPOLAMINE [Suspect]
     Active Substance: DICLOFENAC EPOLAMINE
     Dosage: UNK
     Route: 065
  56. GINKGO [Suspect]
     Active Substance: GINKGO
     Dosage: UNK, BID
     Route: 065
  57. MOMETASONE FUROATE [Suspect]
     Active Substance: MOMETASONE FUROATE
     Dosage: UNK UNK, PRN
     Route: 065
  58. MOMETASONE FUROATE [Suspect]
     Active Substance: MOMETASONE FUROATE
     Dosage: UNK
     Route: 065
  59. MOMETASONE FUROATE [Suspect]
     Active Substance: MOMETASONE FUROATE
     Dosage: UNK
     Route: 065
  60. MOMETASONE FUROATE [Suspect]
     Active Substance: MOMETASONE FUROATE
     Dosage: UNK UNK, PRN
     Route: 065
  61. MOMETASONE FUROATE [Suspect]
     Active Substance: MOMETASONE FUROATE
     Dosage: UNK
     Route: 065
  62. MOMETASONE FUROATE [Suspect]
     Active Substance: MOMETASONE FUROATE
     Dosage: 2 PUFFS (1-0-1)
     Route: 065
  63. EUCALYPTUS OIL [Concomitant]
     Active Substance: EUCALYPTUS OIL
  64. FOENICULUM VULGARE OIL [Concomitant]
  65. HERBALS [Concomitant]
     Active Substance: HERBALS
  66. ILLICIUM VERUM OIL [Concomitant]
  67. PEPPERMINT OIL [Concomitant]
     Active Substance: PEPPERMINT OIL
  68. PIMPINELLA ANISUM OIL [Concomitant]
  69. HERBALS\PHENYL SALICYLATE [Concomitant]
     Active Substance: HERBALS\PHENYL SALICYLATE
     Dosage: 10 GTT, QID
  70. HERBALS\PHENYL SALICYLATE [Concomitant]
     Active Substance: HERBALS\PHENYL SALICYLATE
     Route: 065
  71. DIETARY SUPPLEMENT [Concomitant]
     Active Substance: DIETARY SUPPLEMENT
  72. PREDNISOLONE TEVA [PREDNISOLONE] [Concomitant]
     Route: 065
  73. PREDNISOLONE TEVA [PREDNISOLONE] [Concomitant]
     Route: 065
  74. EVOLOCUMAB [Concomitant]
     Active Substance: EVOLOCUMAB
     Dosage: 1 DF, OW
     Route: 065
  75. GINKGO [Concomitant]
     Active Substance: GINKGO
     Route: 065
  76. CALCIUM CALVIVE [Concomitant]
     Dosage: 500 MG, UNK
     Route: 065
  77. OLMESARTAN MEDOXOMIL [Concomitant]
     Active Substance: OLMESARTAN MEDOXOMIL
     Route: 065
  78. CHOLECALCIFEROL [Concomitant]
     Active Substance: CHOLECALCIFEROL
     Route: 065
  79. CHOLECALCIFEROL [Concomitant]
     Active Substance: CHOLECALCIFEROL
     Dosage: 2000 IU, OW
     Route: 065
  80. ALBUTEROL [Concomitant]
     Active Substance: ALBUTEROL
     Route: 055
     Dates: start: 2018, end: 2018
  81. MAGNESIUM ASPARTAT [Concomitant]
  82. CALCIUM PANTOTHENATE;CYSTEINE [Concomitant]
     Route: 065
  83. CALCIUM PANTOTHENATE;CYSTEINE [Concomitant]
     Route: 065
  84. CALCIUM CARBONATE [Concomitant]
     Active Substance: CALCIUM CARBONATE
     Route: 065
  85. BISOPROLOL FUMARATE [Concomitant]
     Active Substance: BISOPROLOL FUMARATE
     Route: 065
  86. CRESTOR [Concomitant]
     Active Substance: ROSUVASTATIN CALCIUM
     Route: 065
  87. SALMETEROL XINAFOATE [Concomitant]
     Active Substance: SALMETEROL XINAFOATE
     Route: 048
     Dates: start: 2018, end: 2018
  88. FLUTICASONE PROPIONATE\SALMETEROL XINAFOATE [Concomitant]
     Active Substance: FLUTICASONE PROPIONATE\SALMETEROL XINAFOATE
     Dates: start: 2018, end: 2018
  89. EVOLOCUMAB [Concomitant]
     Active Substance: EVOLOCUMAB
     Route: 065
  90. BISOPROLOL [Concomitant]
     Active Substance: BISOPROLOL\BISOPROLOL FUMARATE
  91. DICLOFENAC EPOLAMINE [Concomitant]
     Active Substance: DICLOFENAC EPOLAMINE
  92. OLMESARTAN MEDOXOMIL [Concomitant]
     Active Substance: OLMESARTAN MEDOXOMIL
     Route: 065
  93. VITAMIN D NOS [Concomitant]
     Active Substance: VITAMIN D NOS
     Route: 065

REACTIONS (24)
  - Plantar fasciitis [Unknown]
  - Nasopharyngitis [Unknown]
  - Coronary artery disease [Unknown]
  - Atrial fibrillation [Recovered/Resolved]
  - Dysphonia [Unknown]
  - Cough [Not Recovered/Not Resolved]
  - Muscle spasms [Unknown]
  - Dyspnoea [Unknown]
  - Cardiac disorder [Unknown]
  - Myoglobin blood increased [Unknown]
  - Wheezing [Unknown]
  - Fractional exhaled nitric oxide increased [Recovered/Resolved]
  - Secretion discharge [Unknown]
  - Obstructive airways disorder [Unknown]
  - Sensation of foreign body [Unknown]
  - Brain natriuretic peptide increased [Unknown]
  - Eosinophilia [Unknown]
  - Dyspnoea exertional [Unknown]
  - Obstructive sleep apnoea syndrome [Unknown]
  - Chest discomfort [Unknown]
  - Pneumothorax [Not Recovered/Not Resolved]
  - Exostosis [Unknown]
  - Increased upper airway secretion [Unknown]
  - Sensation of foreign body [Unknown]

NARRATIVE: CASE EVENT DATE: 20180101
